FAERS Safety Report 6469453-1 (Version None)
Quarter: 2009Q4

REPORT INFORMATION
  Report Type: 
  Country: None (occurrence: None)
  Receive Date: 20091203
  Receipt Date: 20091123
  Transmission Date: 20100525
  Serious: Yes (Disabling, Other)
  Sender: FDA-Public Use
  Company Number: GB-ELI_LILLY_AND_COMPANY-GB200910000691

PATIENT
  Sex: Female
  Weight: 82 kg

DRUGS (1)
  1. CYMBALTA [Suspect]
     Indication: DEPRESSION
     Dosage: 30 MG, DAILY (1/D)
     Route: 048
     Dates: start: 20090417, end: 20091001

REACTIONS (3)
  - PELVIC HAEMATOMA [None]
  - PELVIC PAIN [None]
  - SALPINGO-OOPHORECTOMY UNILATERAL [None]
